FAERS Safety Report 17556629 (Version 1)
Quarter: 2020Q1

REPORT INFORMATION
  Report Type: Spontaneous
  Country: IL (occurrence: IL)
  Receive Date: 20200318
  Receipt Date: 20200318
  Transmission Date: 20200409
  Serious: Yes (Other)
  Sender: FDA-Public Use
  Company Number: IL-OXFORD PHARMACEUTICALS, LLC-2020OXF00034

PATIENT

DRUGS (1)
  1. SIMVASTATIN. [Suspect]
     Active Substance: SIMVASTATIN
     Dosage: 40 MG, 1X/DAY
     Route: 065

REACTIONS (1)
  - Osteonecrosis of jaw [Unknown]
